FAERS Safety Report 7831253-5 (Version None)
Quarter: 2011Q4

REPORT INFORMATION
  Report Type: 
  Country: None (occurrence: None)
  Receive Date: 20111021
  Receipt Date: 20111006
  Transmission Date: 20120403
  Serious: Yes (Hospitalization, Disabling, Other)
  Sender: FDA-Public Use
  Company Number: IT-ROCHE-729635

PATIENT
  Sex: Female
  Weight: 47 kg

DRUGS (30)
  1. MIRCERA [Suspect]
     Dosage: LAST DOSE PRIOR TO SAE: 15 AUG 2011
     Route: 042
  2. CLOPIDOGREL [Concomitant]
  3. SEVELAMER CARBONATE [Concomitant]
  4. MIRCERA [Suspect]
     Indication: NEPHROGENIC ANAEMIA
     Dosage: LAST DOSE PRIOR TO SAE: 16 JUNE 2010, DOSAGE FORM: PFS
     Route: 042
  5. IRON GLUCONATE [Concomitant]
  6. ATORVASTATIN CALCIUM [Concomitant]
  7. CARVEDILOL [Concomitant]
  8. ALLOPURINOL [Concomitant]
  9. FUROSEMIDE [Concomitant]
  10. TEMISARTAN [Concomitant]
  11. DIGOXIN [Concomitant]
     Dosage: TDD: 625 GU
     Dates: start: 20100702, end: 20101124
  12. PRAVASTATIN [Concomitant]
  13. MIRCERA [Suspect]
     Dosage: LAST DOSE PRIOR TO SAE:15 NOVEMBER 2010, DOSAGE FORM: PFS
     Route: 042
  14. VERAPAMIL [Concomitant]
  15. TEMISARTAN [Concomitant]
  16. LANSOPRAZOLE [Concomitant]
  17. PREDNISONE [Concomitant]
  18. RISEDRONIC ACID [Concomitant]
  19. METOPROLOL TARTRATE [Concomitant]
  20. PARICALCITOL [Concomitant]
     Dosage: REPORTED AS PARACALCITOL
  21. MIRCERA [Suspect]
     Dosage: LAST DOSE PRIOR TO SAE: 14 JANUARY 2011.
     Route: 042
  22. DARBEPOETIN ALFA [Suspect]
     Indication: NEPHROGENIC ANAEMIA
     Dosage: NURSE MISTAKE ON 15 DEC 2010, DARBEPOTIN ALFA (BATCH 1016812) WAS ADMINISTERED.
     Route: 065
     Dates: start: 20101215, end: 20101215
  23. RISEDRONIC ACID [Concomitant]
  24. METOPROLOL TARTRATE [Concomitant]
  25. AMLODIPINE [Concomitant]
  26. ACETAMINOPHEN [Concomitant]
  27. ASPIRIN [Concomitant]
  28. SEVELAMER [Concomitant]
  29. LANTHANUM CARBONATE [Concomitant]
  30. ASPIRIN [Concomitant]
     Dates: start: 20091226

REACTIONS (6)
  - SPINAL COMPRESSION FRACTURE [None]
  - CHRONIC MYELOID LEUKAEMIA [None]
  - ANGINA PECTORIS [None]
  - MYOCARDIAL INFARCTION [None]
  - MYOCARDIAL ISCHAEMIA [None]
  - CEREBRAL ISCHAEMIA [None]
